FAERS Safety Report 7476223-4 (Version None)
Quarter: 2011Q2

REPORT INFORMATION
  Report Type: 
  Country: None (occurrence: None)
  Receive Date: 20110512
  Receipt Date: 20110502
  Transmission Date: 20111010
  Serious: Yes (Hospitalization)
  Sender: FDA-Public Use
  Company Number: US-SHIRE-SPV1-2009-01736

PATIENT
  Sex: Male
  Weight: 14.2 kg

DRUGS (3)
  1. IDURSULFASE [Suspect]
     Indication: MUCOPOLYSACCHARIDOSIS II
     Dosage: 7.1 MG, 1X/WEEK
     Route: 041
     Dates: start: 20081219
  2. ACETAMINOPHEN [Concomitant]
     Indication: PREMEDICATION
     Dosage: 180 MG, 1X/WEEK
  3. DIPHENHYDRAMINE HCL [Concomitant]
     Indication: PREMEDICATION
     Dosage: 12.5 MG, 1X/WEEK

REACTIONS (3)
  - INFUSION RELATED REACTION [None]
  - RESPIRATORY DISORDER [None]
  - PYREXIA [None]
